FAERS Safety Report 6042328-8 (Version None)
Quarter: 2009Q1

REPORT INFORMATION
  Report Type: 
  Country: None (occurrence: None)
  Receive Date: 20090116
  Receipt Date: 20090105
  Transmission Date: 20090719
  Serious: Yes (Life-Threatening)
  Sender: FDA-Public Use
  Company Number: TH-BAXTER-2009BH000170

PATIENT
  Age: 6 Year
  Sex: Female
  Weight: 18 kg

DRUGS (4)
  1. DIANEAL [Suspect]
     Indication: PERITONEAL DIALYSIS
     Route: 033
     Dates: start: 20081227
  2. DIANEAL [Suspect]
     Route: 033
     Dates: start: 20080711, end: 20081227
  3. FORTUM [Concomitant]
     Indication: DRUG USE FOR UNKNOWN INDICATION
     Route: 033
     Dates: start: 20081228
  4. CEFAZOLIN [Concomitant]
     Indication: DRUG USE FOR UNKNOWN INDICATION
     Route: 033
     Dates: start: 20081228

REACTIONS (1)
  - FUNGAL PERITONITIS [None]
